FAERS Safety Report 21589210 (Version 1)
Quarter: 2022Q4

REPORT INFORMATION
  Report Type: Spontaneous
  Country: US (occurrence: US)
  Receive Date: 20221114
  Receipt Date: 20221114
  Transmission Date: 20230112
  Serious: Yes (Other)
  Sender: FDA-Public Use
  Company Number: US-ABBVIE-4198706

PATIENT
  Sex: Male

DRUGS (1)
  1. HUMIRA [Suspect]
     Active Substance: ADALIMUMAB
     Indication: Product used for unknown indication
     Dosage: 40 MG
     Route: 058

REACTIONS (6)
  - Pulmonary embolism [Unknown]
  - Emphysema [Unknown]
  - Pulmonary fibrosis [Unknown]
  - Device issue [Not Recovered/Not Resolved]
  - Gait disturbance [Unknown]
  - Tremor [Unknown]
